FAERS Safety Report 7404099-X (Version None)
Quarter: 2011Q2

REPORT INFORMATION
  Report Type: 
  Country: None (occurrence: None)
  Receive Date: 20110408
  Receipt Date: 20110316
  Transmission Date: 20111010
  Serious: No
  Sender: FDA-Public Use
  Company Number: US-B.I. PHARMACEUTICALS,INC./RIDGEFIELD-2011-BP-08235BP

PATIENT
  Sex: Female

DRUGS (4)
  1. LOVAZA [Concomitant]
     Indication: BLOOD CHOLESTEROL INCREASED
  2. LEVOTHYROXINE [Concomitant]
     Indication: THYROID DISORDER
  3. ZANTAC 150 [Suspect]
     Indication: GASTROOESOPHAGEAL REFLUX DISEASE
     Dosage: 300 MG
     Route: 048
     Dates: start: 20100101
  4. LOTRO [Concomitant]
     Indication: HYPERTENSION

REACTIONS (3)
  - EAR DISORDER [None]
  - TINNITUS [None]
  - HEADACHE [None]
